FAERS Safety Report 16912455 (Version 2)
Quarter: 2019Q4

REPORT INFORMATION
  Report Type: Spontaneous
  Country: US (occurrence: US)
  Receive Date: 20191014
  Receipt Date: 20191022
  Transmission Date: 20200122
  Serious: Yes (Hospitalization, Other)
  Sender: FDA-Public Use
  Company Number: US-CIPLA LTD.-2019US06777

PATIENT

DRUGS (2)
  1. ATORVASTATIN [Suspect]
     Active Substance: ATORVASTATIN
     Indication: HYPERLIPIDAEMIA
     Dosage: UNK
     Route: 065
  2. ATORVASTATIN [Suspect]
     Active Substance: ATORVASTATIN
     Dosage: UNK, INCREASED DOSAGE
     Route: 065

REACTIONS (8)
  - Dyspnoea exertional [Recovering/Resolving]
  - Muscular weakness [Unknown]
  - Hypercapnia [Recovering/Resolving]
  - Diaphragm muscle weakness [Recovering/Resolving]
  - Limb discomfort [Unknown]
  - Myopathy [Recovering/Resolving]
  - Atelectasis [Recovering/Resolving]
  - Blood creatine phosphokinase increased [Unknown]
